FAERS Safety Report 4811792-1 (Version None)
Quarter: 2005Q4

REPORT INFORMATION
  Report Type: 
  Country: None (occurrence: None)
  Receive Date: 20051026
  Receipt Date: 20051014
  Transmission Date: 20060501
  Serious: Yes (Other)
  Sender: FDA-Public Use
  Company Number: 2005143717

PATIENT
  Age: 78 Year
  Sex: Male

DRUGS (10)
  1. ATORVASTATIN CALCIUM [Suspect]
     Indication: ILL-DEFINED DISORDER
     Dosage: 80 MG (80 MG, DAILY), ORAL
     Route: 048
  2. EZETROL               (EZETIMIBE) [Suspect]
     Indication: ILL-DEFINED DISORDER
     Dosage: 10 MG (10 MG, DAILY), ORAL
     Route: 048
  3. ALTACE [Concomitant]
  4. ATROVENT [Concomitant]
  5. WARFARIN SODIUM [Concomitant]
  6. DIDROCAL             (CALCIUM CARBONATE, ETIDRONATE DISODIUM) [Concomitant]
  7. FLOVENT [Concomitant]
  8. LASIX [Concomitant]
  9. METOPROLOL TARTRATE [Concomitant]
  10. NORVASC [Concomitant]

REACTIONS (2)
  - AMNESIA [None]
  - DISORIENTATION [None]
